FAERS Safety Report 9838541 (Version 2)
Quarter: 2014Q1

REPORT INFORMATION
  Report Type: Spontaneous
  Country: US (occurrence: US)
  Receive Date: 20140123
  Receipt Date: 20140123
  Transmission Date: 20141002
  Serious: Yes (Other)
  Sender: FDA-Public Use
  Company Number: US-ASTELLAS-2013US008729

PATIENT
  Age: 44 Year
  Sex: Female

DRUGS (3)
  1. TARCEVA [Suspect]
     Indication: NON-SMALL CELL LUNG CANCER
     Dosage: 150 MG, UNKNOWN/D
     Route: 048
     Dates: start: 201008
  2. TARCEVA [Suspect]
     Dosage: 100 MG, UNKNOWN/D
     Route: 048
     Dates: start: 201103, end: 20130509
  3. TARCEVA [Suspect]
     Dosage: 25 MG, UNKNOWN/D
     Route: 048

REACTIONS (3)
  - Dermatitis exfoliative [Unknown]
  - Onycholysis [Recovering/Resolving]
  - Dermatitis acneiform [Recovering/Resolving]
